FAERS Safety Report 24831454 (Version 1)
Quarter: 2025Q1

REPORT INFORMATION
  Report Type: Spontaneous
  Country: US (occurrence: None)
  Receive Date: 20250110
  Receipt Date: 20250110
  Transmission Date: 20250408
  Serious: Yes (Other)
  Sender: FDA-CTU
  Company Number: None

PATIENT
  Age: 70 Year
  Sex: Female

DRUGS (25)
  1. REPATHA [Suspect]
     Active Substance: EVOLOCUMAB
     Indication: Hyperlipidaemia
     Route: 058
     Dates: start: 20241022
  2. REPATHA [Suspect]
     Active Substance: EVOLOCUMAB
     Indication: Cardiovascular disorder
  3. REPATHA [Suspect]
     Active Substance: EVOLOCUMAB
     Indication: Cardiovascular disorder
  4. REPATHA [Suspect]
     Active Substance: EVOLOCUMAB
     Indication: Cardiovascular disorder
  5. CETIRIZINE [Concomitant]
     Active Substance: CETIRIZINE HYDROCHLORIDE
  6. Erythromycin opth oint [Concomitant]
  7. FENOFIBRATE [Concomitant]
     Active Substance: FENOFIBRATE
  8. LEVOTHYROXINE [Concomitant]
     Active Substance: LEVOTHYROXINE
  9. LUTEIN [Concomitant]
     Active Substance: LUTEIN
  10. VITAMIN D [Concomitant]
     Active Substance: VITAMIN D NOS
  11. AMLODIPINE [Concomitant]
     Active Substance: AMLODIPINE BESYLATE
  12. FUROSEMIDE [Concomitant]
     Active Substance: FUROSEMIDE
     Dates: start: 20210514
  13. CALCIUM CITRATE [Concomitant]
     Active Substance: CALCIUM CITRATE
  14. CARVEDILOL [Concomitant]
     Active Substance: CARVEDILOL
  15. PLAVIX [Concomitant]
     Active Substance: CLOPIDOGREL BISULFATE
  16. ISOSORBIDE MONONITRATE [Concomitant]
     Active Substance: ISOSORBIDE MONONITRATE
  17. LEFLUNOMIDE [Concomitant]
     Active Substance: LEFLUNOMIDE
  18. MAGNESIUM [Concomitant]
     Active Substance: MAGNESIUM
  19. OMEPRAZOLE [Concomitant]
     Active Substance: OMEPRAZOLE
  20. RANOLAZINE [Concomitant]
     Active Substance: RANOLAZINE
  21. SPIRONOLACTONE [Concomitant]
     Active Substance: SPIRONOLACTONE
  22. VALSARTAN [Concomitant]
     Active Substance: VALSARTAN
  23. FISH OIL [Concomitant]
     Active Substance: FISH OIL
  24. NITROGLYCERIN [Concomitant]
     Active Substance: NITROGLYCERIN
  25. POTASSIUM [Concomitant]
     Active Substance: POTASSIUM

REACTIONS (7)
  - Nasopharyngitis [None]
  - Nasal congestion [None]
  - Cough [None]
  - Swelling face [None]
  - Peripheral swelling [None]
  - Hypoaesthesia [None]
  - Paraesthesia [None]

NARRATIVE: CASE EVENT DATE: 20241022
